FAERS Safety Report 5014863-2 (Version None)
Quarter: 2006Q2

REPORT INFORMATION
  Report Type: 
  Country: None (occurrence: None)
  Receive Date: 20060412
  Receipt Date: 20050609
  Transmission Date: 20061013
  Serious: Yes (Hospitalization, Other)
  Sender: FDA-Public Use
  Company Number: 2005-BP-02976BP

PATIENT
  Age: 66 Year
  Sex: Female

DRUGS (16)
  1. MOBIC [Suspect]
     Indication: FIBROMYALGIA
     Dosage: SEE IMAGE
     Route: 048
     Dates: start: 20041021, end: 20041022
  2. MOBIC [Suspect]
     Indication: FIBROMYALGIA
     Dosage: SEE IMAGE
     Route: 048
     Dates: start: 20041022, end: 20050207
  3. PROZAC [Concomitant]
  4. TRAZODONE HCL [Concomitant]
  5. LIPITOR [Concomitant]
  6. ACIPHEX [Concomitant]
  7. AMBIEN [Concomitant]
  8. REQUIP (ROBINIROLE HYDROCHLORIDE) [Concomitant]
  9. DIAZEPAM [Concomitant]
  10. ROXICET [Concomitant]
  11. PROPOXYPHENE (DEXTROPROPOXYPHENE) [Concomitant]
  12. MELATONIN (MELATONIN) [Concomitant]
  13. VYTORIN [Concomitant]
  14. DARVON [Concomitant]
  15. ASPIRIN [Concomitant]
  16. COZAAR [Concomitant]

REACTIONS (12)
  - ALOPECIA [None]
  - ANXIETY [None]
  - BLOOD PRESSURE INCREASED [None]
  - CONFUSIONAL STATE [None]
  - DIZZINESS [None]
  - DYSPHONIA [None]
  - FATIGUE [None]
  - FEELING JITTERY [None]
  - HYPERHIDROSIS [None]
  - NAUSEA [None]
  - TACHYCARDIA [None]
  - VEIN DISORDER [None]
